FAERS Safety Report 20672647 (Version 1)
Quarter: 2022Q2

REPORT INFORMATION
  Report Type: Other
  Country: US (occurrence: None)
  Receive Date: 20220405
  Receipt Date: 20220405
  Transmission Date: 20220721
  Serious: Yes (Hospitalization, Other)
  Sender: FDA-Public Use
  Company Number: US-ROCHE-2597025

PATIENT
  Sex: Female
  Weight: 74.910 kg

DRUGS (8)
  1. OCREVUS [Suspect]
     Active Substance: OCRELIZUMAB
     Indication: Relapsing-remitting multiple sclerosis
     Dosage: 300 MG ON DAY 1 AND 15, THEN 600 MG IN 6 MONTHS?DATE OF TREATMENT: 28/JUN/2019 AND 25/FEB/2020
     Route: 042
     Dates: start: 20181101
  2. OCREVUS [Suspect]
     Active Substance: OCRELIZUMAB
     Route: 042
     Dates: start: 20190628
  3. TAMIFLU [Suspect]
     Active Substance: OSELTAMIVIR PHOSPHATE
     Indication: Influenza
     Route: 065
     Dates: start: 202003
  4. GABAPENTIN [Concomitant]
     Active Substance: GABAPENTIN
  5. CYMBALTA [Concomitant]
     Active Substance: DULOXETINE HYDROCHLORIDE
     Indication: Anxiety
  6. CYMBALTA [Concomitant]
     Active Substance: DULOXETINE HYDROCHLORIDE
     Indication: Pain
  7. STRATTERA [Concomitant]
     Active Substance: ATOMOXETINE HYDROCHLORIDE
     Indication: Attention deficit hyperactivity disorder
  8. PROPRANOLOL [Concomitant]
     Active Substance: PROPRANOLOL HYDROCHLORIDE
     Indication: Migraine

REACTIONS (16)
  - Fall [Unknown]
  - Muscular weakness [Unknown]
  - Amnesia [Not Recovered/Not Resolved]
  - Influenza [Recovered/Resolved]
  - Hypoaesthesia [Recovering/Resolving]
  - Arthralgia [Unknown]
  - Burning sensation [Unknown]
  - Tendon disorder [Recovered/Resolved]
  - Stress [Unknown]
  - Dizziness [Unknown]
  - Feeling hot [Recovered/Resolved]
  - Nausea [Recovered/Resolved]
  - Narcolepsy [Not Recovered/Not Resolved]
  - Depression [Not Recovered/Not Resolved]
  - Migraine [Not Recovered/Not Resolved]
  - Neuralgia [Not Recovered/Not Resolved]

NARRATIVE: CASE EVENT DATE: 20190101
